FAERS Safety Report 14249206 (Version 1)
Quarter: 2017Q4

REPORT INFORMATION
  Report Type: Spontaneous
  Country: US (occurrence: US)
  Receive Date: 20171204
  Receipt Date: 20171204
  Transmission Date: 20180321
  Serious: No
  Sender: FDA-Public Use
  Company Number: US-ACTELION-A-US2017-163608

PATIENT
  Age: 15 Year
  Sex: Female

DRUGS (16)
  1. SINGULAIR [Concomitant]
     Active Substance: MONTELUKAST SODIUM
  2. METRONIDAZOLE. [Concomitant]
     Active Substance: METRONIDAZOLE
  3. LAMICTAL [Concomitant]
     Active Substance: LAMOTRIGINE
  4. ZAVESCA [Suspect]
     Active Substance: MIGLUSTAT
     Indication: LIPIDOSIS
     Dosage: 200 MG, QAM,
     Route: 048
     Dates: start: 20100510
  5. TRILEPTAL [Concomitant]
     Active Substance: OXCARBAZEPINE
  6. KEPPRA [Concomitant]
     Active Substance: LEVETIRACETAM
  7. FLORASTOR [Concomitant]
     Active Substance: SACCHAROMYCES CEREVISIAE
  8. ALDACTONE [Concomitant]
     Active Substance: SPIRONOLACTONE
  9. PEPCID [Concomitant]
     Active Substance: FAMOTIDINE
  10. ZETIA [Concomitant]
     Active Substance: EZETIMIBE
  11. ZAVESCA [Suspect]
     Active Substance: MIGLUSTAT
     Dosage: 100 MG, QAM,
     Route: 048
     Dates: start: 20100510
  12. ZOLOFT [Concomitant]
     Active Substance: SERTRALINE HYDROCHLORIDE
  13. ROBINUL [Concomitant]
     Active Substance: GLYCOPYRROLATE
  14. TRANSDERM SCOP [Concomitant]
     Active Substance: SCOPOLAMINE
  15. FEXOFENADINE [Concomitant]
     Active Substance: FEXOFENADINE\FEXOFENADINE HYDROCHLORIDE
  16. DOXYCYCLINE HYCLATE. [Concomitant]
     Active Substance: DOXYCYCLINE HYCLATE

REACTIONS (1)
  - Urinary tract infection [Unknown]
